FAERS Safety Report 10399029 (Version 5)
Quarter: 2014Q4

REPORT INFORMATION
  Report Type: Spontaneous
  Country: JP (occurrence: JP)
  Receive Date: 20140821
  Receipt Date: 20141017
  Transmission Date: 20150528
  Serious: Yes (Death, Other)
  Sender: FDA-Public Use
  Company Number: PHHY2014JP102384

PATIENT
  Age: 65 Year
  Sex: Male

DRUGS (3)
  1. CICLOSPORIN [Suspect]
     Active Substance: CYCLOSPORINE
     Indication: PSORIASIS
     Dosage: 300 MG, 50 TO 300MG
     Route: 048
     Dates: end: 201307
  2. PREDNISOLONE. [Suspect]
     Active Substance: PREDNISOLONE
     Indication: PSORIASIS
     Route: 048
  3. METHOTREXATE [Suspect]
     Active Substance: METHOTREXATE
     Indication: PSORIASIS
     Route: 048

REACTIONS (10)
  - Metastases to lymph nodes [Fatal]
  - Neutropenia [Fatal]
  - Papule [Unknown]
  - Febrile neutropenia [Fatal]
  - Metastases to lung [Fatal]
  - Pyrexia [Fatal]
  - Metastases to liver [Fatal]
  - Metastases to bone [Fatal]
  - Psoriasis [Unknown]
  - Sebaceous carcinoma [Recovered/Resolved]

NARRATIVE: CASE EVENT DATE: 200105
